FAERS Safety Report 14291329 (Version 4)
Quarter: 2018Q1

REPORT INFORMATION
  Report Type: Report from Study
  Country: US (occurrence: US)
  Receive Date: 20171215
  Receipt Date: 20180209
  Transmission Date: 20180509
  Serious: Yes (Hospitalization, Other)
  Sender: FDA-Public Use
  Company Number: US-GILEAD-2017-0310598

PATIENT
  Age: 58 Year
  Sex: Female
  Weight: 92.97 kg

DRUGS (5)
  1. REMODULIN [Suspect]
     Active Substance: TREPROSTINIL
     Indication: PULMONARY ARTERIAL HYPERTENSION
     Dosage: 0.165 UG/KG, UNK
     Route: 041
     Dates: start: 20170816
  2. REMODULIN [Suspect]
     Active Substance: TREPROSTINIL
     Dosage: 0.159 UG/KG, UNK
     Route: 041
  3. REMODULIN [Suspect]
     Active Substance: TREPROSTINIL
     Dosage: 0.021 UG/KG, UNK
     Route: 041
     Dates: start: 201801
  4. AMBRISENTAN [Suspect]
     Active Substance: AMBRISENTAN
     Indication: PRODUCT USED FOR UNKNOWN INDICATION
     Dosage: 5 MG, QD
     Route: 065
     Dates: end: 201712
  5. REMODULIN [Suspect]
     Active Substance: TREPROSTINIL
     Dosage: 0.205 UG/KG, UNK
     Route: 041

REACTIONS (12)
  - Rash [Recovering/Resolving]
  - Device related infection [Unknown]
  - Diarrhoea [Recovering/Resolving]
  - Nausea [Unknown]
  - Post procedural infection [Unknown]
  - Sinus congestion [Unknown]
  - Biopsy lung [Unknown]
  - Post procedural inflammation [Unknown]
  - Tremor [Unknown]
  - Fatigue [Unknown]
  - Bone disorder [Unknown]
  - Nasal congestion [Unknown]

NARRATIVE: CASE EVENT DATE: 2017
